FAERS Safety Report 7569315-2 (Version None)
Quarter: 2011Q2

REPORT INFORMATION
  Report Type: 
  Country: None (occurrence: None)
  Receive Date: 20110623
  Receipt Date: 20110616
  Transmission Date: 20111010
  Serious: Yes (Life-Threatening, Hospitalization)
  Sender: FDA-Public Use
  Company Number: AU-CELGENEUS-008-20785-11061759

PATIENT
  Sex: Female
  Weight: 70 kg

DRUGS (4)
  1. PREDNISOLONE [Concomitant]
     Route: 065
  2. THALOMID [Suspect]
     Indication: MULTIPLE MYELOMA
     Dosage: 50 MILLIGRAM
     Route: 048
     Dates: start: 20110512
  3. THALOMID [Suspect]
     Dosage: 100 MILLIGRAM
     Route: 048
  4. ANTIPSYCHOTICS [Concomitant]
     Route: 065

REACTIONS (1)
  - MULTIPLE MYELOMA [None]
